FAERS Safety Report 6857090-6 (Version None)
Quarter: 2010Q3

REPORT INFORMATION
  Report Type: 
  Country: None (occurrence: None)
  Receive Date: 20100719
  Receipt Date: 20100706
  Transmission Date: 20110219
  Serious: Yes (Death, Congenital Anomaly)
  Sender: FDA-Public Use
  Company Number: B0488113B

PATIENT

DRUGS (3)
  1. LAMIVUDINE [Suspect]
     Indication: HIV INFECTION
     Dosage: 300MG PER DAY
  2. TENOFOVIR [Suspect]
     Indication: HIV INFECTION
     Dosage: 245MG PER DAY
     Dates: start: 20030305
  3. NEVIRAPINE [Suspect]
     Indication: HIV INFECTION
     Dosage: 400MG PER DAY

REACTIONS (3)
  - PLACENTAL DISORDER [None]
  - PLACENTAL TRANSFUSION SYNDROME [None]
  - STILLBIRTH [None]
